FAERS Safety Report 11196647 (Version 1)
Quarter: 2015Q2

REPORT INFORMATION
  Report Type: Spontaneous
  Country: US (occurrence: US)
  Receive Date: 20150617
  Receipt Date: 20150617
  Transmission Date: 20150821
  Serious: No
  Sender: FDA-Public Use
  Company Number: US-009507513-1506USA008226

PATIENT
  Age: 20 Year
  Sex: Male

DRUGS (1)
  1. RAGWITEK [Suspect]
     Active Substance: AMBROSIA ARTEMISIIFOLIA POLLEN
     Indication: SEASONAL ALLERGY
     Dosage: 15 MG, QD
     Route: 048

REACTIONS (2)
  - Pharyngeal oedema [Recovering/Resolving]
  - Wrong technique in drug usage process [Unknown]

NARRATIVE: CASE EVENT DATE: 201506
